FAERS Safety Report 9532320 (Version 3)
Quarter: 2013Q4

REPORT INFORMATION
  Report Type: Report from Study
  Country: MX (occurrence: MX)
  Receive Date: 20130918
  Receipt Date: 20131003
  Transmission Date: 20140711
  Serious: Yes (Other)
  Sender: FDA-Public Use
  Company Number: PHHY2011MX88250

PATIENT
  Age: 9 Year
  Sex: Female

DRUGS (4)
  1. TRILEPTAL [Suspect]
     Indication: EPILEPSY
     Dosage: 10 ML (6G/100ML), DAILY
     Route: 048
     Dates: start: 201002
  2. TRILEPTAL [Suspect]
     Dosage: UNK UKN, UNK
  3. KEPRA [Concomitant]
     Indication: CONVULSION
     Dosage: UNK UKN, UNK
  4. NOOTROPIL [Concomitant]
     Indication: CONVULSION
     Dosage: UNK UKN, UNK
     Route: 048

REACTIONS (3)
  - Osteomyelitis [Not Recovered/Not Resolved]
  - Oedema mouth [Recovered/Resolved]
  - Rash generalised [Recovered/Resolved]
